FAERS Safety Report 10282037 (Version 1)
Quarter: 2014Q3

REPORT INFORMATION
  Report Type: Spontaneous
  Country: CA (occurrence: CA)
  Receive Date: 20140707
  Receipt Date: 20140707
  Transmission Date: 20150326
  Serious: Yes (Other)
  Sender: FDA-Public Use
  Company Number: CA-GLAXOSMITHKLINE-A1079809A

PATIENT
  Sex: Female
  Weight: 79.5 kg

DRUGS (2)
  1. MIRAPEX [Suspect]
     Active Substance: PRAMIPEXOLE DIHYDROCHLORIDE
     Dosage: .25MG UNKNOWN
     Route: 048
     Dates: start: 2006, end: 2006
  2. REQUIP [Suspect]
     Active Substance: ROPINIROLE HYDROCHLORIDE
     Indication: RESTLESS LEGS SYNDROME
     Dosage: .25MG VARIABLE DOSE
     Route: 048
     Dates: start: 2006

REACTIONS (11)
  - Amnesia [Unknown]
  - Hypersexuality [Unknown]
  - Hallucination [Unknown]
  - Weight increased [Unknown]
  - Sleep attacks [Unknown]
  - Narcolepsy [Unknown]
  - Binge eating [Unknown]
  - Nightmare [Unknown]
  - Compulsive shopping [Unknown]
  - Restless legs syndrome [Unknown]
  - Migraine [Unknown]
